FAERS Safety Report 5921340-0 (Version None)
Quarter: 2008Q4

REPORT INFORMATION
  Report Type: 
  Country: None (occurrence: None)
  Receive Date: 20081014
  Receipt Date: 20081009
  Transmission Date: 20090506
  Serious: Yes (Death)
  Sender: FDA-Public Use
  Company Number: 2008JP004313

PATIENT
  Age: 1 Year
  Sex: Male
  Weight: 9.9 kg

DRUGS (11)
  1. FUNGUARD(MICAFUNGIN) INJECTION [Suspect]
     Indication: DRUG USE FOR UNKNOWN INDICATION
     Dosage: 10 MG, UID/QD; IV DRIP; 50 MG, UID/QD; IV DRIP
     Route: 041
     Dates: start: 20080516, end: 20080528
  2. FUNGUARD(MICAFUNGIN) INJECTION [Suspect]
     Indication: DRUG USE FOR UNKNOWN INDICATION
     Dosage: 10 MG, UID/QD; IV DRIP; 50 MG, UID/QD; IV DRIP
     Route: 041
     Dates: start: 20080529, end: 20080530
  3. KEITEN (CEFPIROME SULFATE) [Concomitant]
  4. NEU-UP (NARTOGRASTIM) INJECTION [Concomitant]
  5. PENTCILLIN (PIPERACILLIN SODIUM) INJECTION [Concomitant]
  6. CYCLOPHOSPHAMIDE [Concomitant]
  7. MESNA [Concomitant]
  8. CISPLATIN [Concomitant]
  9. ONCOVIN (VINCRISTINE SULFATE) INJECTION [Concomitant]
  10. METHOTREXATE [Concomitant]
  11. DECADRON (DEXAMETHASONE PHOSPHATE) INJECTION [Concomitant]

REACTIONS (1)
  - LIVER ABSCESS [None]
